FAERS Safety Report 5635884-2 (Version None)
Quarter: 2008Q1

REPORT INFORMATION
  Report Type: 
  Country: None (occurrence: None)
  Receive Date: 20080221
  Receipt Date: 20080211
  Transmission Date: 20080703
  Serious: Yes (Hospitalization)
  Sender: FDA-Public Use
  Company Number: 2008AL000742

PATIENT
  Age: 42 Year
  Sex: Male
  Weight: 70 kg

DRUGS (2)
  1. ACETAMINOPHEN [Suspect]
     Dosage: 1 GM; QID; PO
     Route: 048
  2. ACETAMINOPHEN [Concomitant]

REACTIONS (3)
  - ACUTE HEPATIC FAILURE [None]
  - ENCEPHALOPATHY [None]
  - HYPOXIA [None]
